FAERS Safety Report 6016606-2 (Version None)
Quarter: 2008Q4

REPORT INFORMATION
  Report Type: 
  Country: None (occurrence: None)
  Receive Date: 20081222
  Receipt Date: 20081211
  Transmission Date: 20090506
  Serious: Yes (Hospitalization)
  Sender: FDA-Public Use
  Company Number: PHHY2008CA30192

PATIENT
  Sex: Female

DRUGS (4)
  1. ZOLEDRONIC ACID [Suspect]
     Indication: OSTEOPOROSIS
     Dosage: UNK
     Dates: start: 20081117
  2. HYDROCHLOROTHIAZIDE [Concomitant]
     Dosage: 12.5 MG PER DAY
  3. ALTACE [Concomitant]
     Dosage: 10 MG PER DAY
  4. CARBOCAL D [Concomitant]
     Dosage: 400 MG, BID

REACTIONS (5)
  - BLOOD SODIUM DECREASED [None]
  - DIZZINESS [None]
  - GASTRITIS [None]
  - NAUSEA [None]
  - VOMITING [None]
